FAERS Safety Report 7974171-4 (Version None)
Quarter: 2011Q4

REPORT INFORMATION
  Report Type: 
  Country: None (occurrence: None)
  Receive Date: 20111213
  Receipt Date: 20111206
  Transmission Date: 20120403
  Serious: Yes (Hospitalization)
  Sender: FDA-Public Use
  Company Number: AU-B.I. PHARMACEUTICALS,INC./RIDGEFIELD-2011-AU-02370AU

PATIENT
  Sex: Male

DRUGS (2)
  1. PRADAXA [Suspect]
     Dosage: 300 MG
     Dates: start: 20111201
  2. PRADAXA [Suspect]
     Dosage: 150 MG
     Dates: start: 20110905, end: 20111201

REACTIONS (1)
  - TRANSIENT ISCHAEMIC ATTACK [None]
